FAERS Safety Report 13396175 (Version 1)
Quarter: 2017Q1

REPORT INFORMATION
  Report Type: Spontaneous
  Country: US (occurrence: US)
  Receive Date: 20170331
  Receipt Date: 20170331
  Transmission Date: 20170429
  Serious: No
  Sender: FDA-Public Use
  Company Number: None

PATIENT
  Age: 75 Year
  Sex: Male

DRUGS (1)
  1. ADCIRCA [Suspect]
     Active Substance: TADALAFIL
     Dosage: 20MG X2 QD ORAL
     Route: 048
     Dates: start: 201610

REACTIONS (1)
  - Nasal congestion [None]

NARRATIVE: CASE EVENT DATE: 20170228
